FAERS Safety Report 9067286 (Version 3)
Quarter: 2013Q2

REPORT INFORMATION
  Report Type: Report from Study
  Country: DE (occurrence: DE)
  Receive Date: 20130214
  Receipt Date: 20130403
  Transmission Date: 20140414
  Serious: Yes (Death, Life-Threatening, Hospitalization, Other)
  Sender: FDA-Public Use
  Company Number: DE-ACTELION-A-US2013-79409

PATIENT
  Age: 65 Year
  Sex: Male

DRUGS (2)
  1. VENTAVIS [Suspect]
     Indication: PULMONARY ARTERIAL HYPERTENSION
     Dosage: 5 ?G
     Route: 055
     Dates: start: 20120807
  2. REVATIO [Suspect]
     Dosage: 20 MG, TID
     Route: 048
     Dates: start: 20120807

REACTIONS (4)
  - Pulmonary haemorrhage [Fatal]
  - Multi-organ failure [Fatal]
  - Coma [Unknown]
  - General physical health deterioration [Unknown]
